FAERS Safety Report 8436518-4 (Version None)
Quarter: 2012Q2

REPORT INFORMATION
  Report Type: 
  Country: None (occurrence: None)
  Receive Date: 20120614
  Receipt Date: 20120613
  Transmission Date: 20120825
  Serious: Yes (Other)
  Sender: FDA-Public Use
  Company Number: US-GLAXOSMITHKLINE-A0981146A

PATIENT
  Age: 47 Year
  Sex: Female
  Weight: 79.5 kg

DRUGS (4)
  1. EFFEXOR [Suspect]
     Indication: DEPRESSION
     Route: 048
     Dates: start: 19950101, end: 19970101
  2. XANAX [Concomitant]
     Indication: ANXIETY
     Dosage: 1MG FOUR TIMES PER DAY
     Route: 048
  3. WELLBUTRIN [Suspect]
     Indication: DEPRESSION
     Route: 048
     Dates: start: 19970101
  4. CRESTOR [Concomitant]
     Indication: BLOOD CHOLESTEROL INCREASED
     Dosage: 10MGD PER DAY
     Route: 048

REACTIONS (11)
  - FORMICATION [None]
  - DIZZINESS [None]
  - HALLUCINATION [None]
  - MALAISE [None]
  - MENTAL DISORDER [None]
  - FEELING ABNORMAL [None]
  - VERTIGO [None]
  - SELF ESTEEM DECREASED [None]
  - VOMITING [None]
  - MOBILITY DECREASED [None]
  - DRUG INTERACTION [None]
